FAERS Safety Report 6097869 (Version 3)
Quarter: 2013Q3

REPORT INFORMATION
  Report Type: Spontaneous
  Country: FR (occurrence: FR)
  Receive Date: 20060803
  Receipt Date: 20130812
  Transmission Date: 20140515
  Serious: Yes (Hospitalization, Other)
  Sender: FDA-Public Use
  Company Number: FR-BRISTOL-MYERS SQUIBB COMPANY-13415054

PATIENT
  Age: 38 Year
  Sex: Male
  Weight: 70 kg

DRUGS (6)
  1. REYATAZ CAPS 300 MG [Suspect]
     Indication: HIV INFECTION
     Route: 048
     Dates: start: 200409, end: 20060627
  2. EFAVIRENZ [Suspect]
  3. DIDANOSINE [Concomitant]
     Dates: start: 200309, end: 200409
  4. TENOFOVIR [Concomitant]
     Indication: ANTIRETROVIRAL THERAPY
     Dates: start: 200309
  5. RITONAVIR [Concomitant]
     Indication: ANTIRETROVIRAL THERAPY
     Dates: start: 200409
  6. EMTRIVA [Concomitant]
     Indication: ANTIRETROVIRAL THERAPY
     Dates: start: 200409

REACTIONS (3)
  - Renal colic [Not Recovered/Not Resolved]
  - Calculus urinary [Not Recovered/Not Resolved]
  - Neurological symptom [Unknown]
